FAERS Safety Report 6136537-7 (Version None)
Quarter: 2009Q1

REPORT INFORMATION
  Report Type: 
  Country: None (occurrence: None)
  Receive Date: 20090330
  Receipt Date: 20090319
  Transmission Date: 20090719
  Serious: Yes (Hospitalization, Congenital Anomaly, Other)
  Sender: FDA-Public Use
  Company Number: US-PFIZER INC-2007095297

PATIENT
  Sex: Female

DRUGS (3)
  1. ZOLOFT [Suspect]
     Indication: DEPRESSION
     Route: 064
     Dates: start: 20000724
  2. PROMETHAZINE [Concomitant]
  3. ZOFRAN [Concomitant]

REACTIONS (6)
  - ANGIOPATHY [None]
  - DRUG EXPOSURE DURING PREGNANCY [None]
  - LARYNGEAL STENOSIS [None]
  - RESPIRATORY DISTRESS [None]
  - TAKAYASU'S ARTERITIS [None]
  - UNDERWEIGHT [None]
